FAERS Safety Report 8255049-8 (Version None)
Quarter: 2012Q1

REPORT INFORMATION
  Report Type: 
  Country: None (occurrence: None)
  Receive Date: 20120329
  Receipt Date: 20120319
  Transmission Date: 20120608
  Serious: Yes (Disabling, Other)
  Sender: FDA-Public Use
  Company Number: ACO_29806_2012

PATIENT
  Age: 54 Year
  Sex: Male

DRUGS (2)
  1. ZANAFLEX [Concomitant]
  2. AMPYRA [Suspect]
     Indication: PRODUCT USED FOR UNKNOWN INDICATION
     Dosage: 10 MG, BID, ORAL
     Route: 048
     Dates: start: 20111124

REACTIONS (4)
  - ABASIA [None]
  - FEELING ABNORMAL [None]
  - FALL [None]
  - DYSSTASIA [None]
